FAERS Safety Report 4503742-2 (Version None)
Quarter: 2004Q4

REPORT INFORMATION
  Report Type: 
  Country: None (occurrence: None)
  Receive Date: 20041115
  Receipt Date: 20041102
  Transmission Date: 20050328
  Serious: Yes (Hospitalization)
  Sender: FDA-Public Use
  Company Number: F01200403204

PATIENT
  Age: 53 Year
  Sex: Male

DRUGS (5)
  1. OXALIPLATIN [Suspect]
     Indication: COLON CANCER METASTATIC
     Dosage: INTRAVENOUS NOS
     Route: 042
     Dates: start: 20031218, end: 20031218
  2. XELODA [Suspect]
     Dosage: 3600 MG FROM D 1 TO D14Q3W
     Route: 048
     Dates: start: 20031218, end: 20031226
  3. OMEPRAZOLE [Concomitant]
  4. RANITIDINE [Concomitant]
  5. HALOPERIDOL [Concomitant]

REACTIONS (2)
  - ABDOMINAL PAIN UPPER [None]
  - ANGINA PECTORIS [None]
